FAERS Safety Report 6632967-5 (Version None)
Quarter: 2010Q1

REPORT INFORMATION
  Report Type: 
  Country: None (occurrence: None)
  Receive Date: 20100312
  Receipt Date: 20100209
  Transmission Date: 20100710
  Serious: No
  Sender: FDA-Public Use
  Company Number: US-BAYER-201011881BCC

PATIENT
  Age: 50 Year
  Sex: Male
  Weight: 59 kg

DRUGS (2)
  1. ALEVE (CAPLET) [Suspect]
     Indication: TOOTHACHE
     Dosage: TOTAL DAILY DOSE: 220 MG  UNIT DOSE: 220 MG
     Route: 048
     Dates: start: 20100208
  2. UNKNOWN ANTIBIOTIC [Concomitant]
     Indication: TOOTHACHE
     Route: 065

REACTIONS (2)
  - FEELING COLD [None]
  - SWELLING FACE [None]
